FAERS Safety Report 9834918 (Version 9)
Quarter: 2014Q2

REPORT INFORMATION
  Report Type: Report from Study
  Country: US (occurrence: US)
  Receive Date: 20140122
  Receipt Date: 20140509
  Transmission Date: 20141212
  Serious: Yes (Hospitalization)
  Sender: FDA-Public Use
  Company Number: US-ACTELION-A-NJ2014-93749

PATIENT
  Age: 59 Year
  Sex: Female

DRUGS (6)
  1. TRACLEER [Suspect]
     Indication: PULMONARY ARTERIAL HYPERTENSION
     Dosage: UNK
     Route: 048
  2. VENTAVIS [Suspect]
     Indication: PULMONARY ARTERIAL HYPERTENSION
     Dosage: UNK
     Route: 055
  3. SILDENAFIL [Concomitant]
  4. COUMADIN [Concomitant]
  5. LASIX [Concomitant]
  6. SPIRONOLACTONE [Concomitant]

REACTIONS (15)
  - Cardiac disorder [Unknown]
  - Respiratory disorder [Unknown]
  - Cardiac failure congestive [Unknown]
  - Dyspnoea [Unknown]
  - Fluid retention [Unknown]
  - Hypotension [Unknown]
  - Dizziness [Unknown]
  - Abdominal pain [Unknown]
  - Decreased appetite [Unknown]
  - Oedema [Unknown]
  - Asthenia [Unknown]
  - Muscle spasms [Unknown]
  - Loss of consciousness [Unknown]
  - Cough [Unknown]
  - Insomnia [Unknown]
